FAERS Safety Report 16979564 (Version 1)
Quarter: 2019Q4

REPORT INFORMATION
  Report Type: Spontaneous
  Country: CH (occurrence: CH)
  Receive Date: 20191031
  Receipt Date: 20191031
  Transmission Date: 20200122
  Serious: Yes (Death, Hospitalization, Other)
  Sender: FDA-Public Use
  Company Number: CH-PFIZER INC-2019469517

PATIENT
  Sex: Male
  Weight: 45 kg

DRUGS (4)
  1. ICLUSIG [Interacting]
     Active Substance: PONATINIB
     Dosage: 15 MG, 1X/DAY
     Route: 048
     Dates: start: 20190728
  2. ICLUSIG [Interacting]
     Active Substance: PONATINIB
     Indication: ACUTE MYELOID LEUKAEMIA
     Dosage: 45 MG, 1X/DAY
     Route: 048
     Dates: start: 20190607, end: 20190712
  3. VORICONAZOLE. [Interacting]
     Active Substance: VORICONAZOLE
     Indication: BRONCHOPULMONARY ASPERGILLOSIS
     Dosage: UNK
     Route: 048
     Dates: start: 20190524
  4. VORICONAZOLE. [Suspect]
     Active Substance: VORICONAZOLE
     Indication: BRONCHOPULMONARY ASPERGILLOSIS
     Dosage: UNK
     Route: 042
     Dates: start: 20190514, end: 20190528

REACTIONS (11)
  - Citrobacter sepsis [Fatal]
  - Secondary immunodeficiency [Unknown]
  - Condition aggravated [Recovering/Resolving]
  - Device related infection [Recovered/Resolved]
  - Gastroenteritis adenovirus [Unknown]
  - Pyrexia [Recovered/Resolved]
  - Cachexia [Not Recovered/Not Resolved]
  - Liver function test increased [Recovering/Resolving]
  - Drug interaction [Unknown]
  - Neoplasm progression [Fatal]
  - Decreased appetite [Recovering/Resolving]

NARRATIVE: CASE EVENT DATE: 20190526
